FAERS Safety Report 8618005-3 (Version None)
Quarter: 2012Q3

REPORT INFORMATION
  Report Type: 
  Country: None (occurrence: None)
  Receive Date: 20120824
  Receipt Date: 20120131
  Transmission Date: 20120928
  Serious: No
  Sender: FDA-Public Use
  Company Number: US-ASTRAZENECA-2012SE06192

PATIENT
  Sex: Male
  Weight: 68 kg

DRUGS (6)
  1. SIMVASTATIN [Concomitant]
  2. SYMBICORT [Suspect]
     Dosage: 160/4.5 MG UNKNOWN FREQUENCY
     Route: 055
  3. TERAZOSIN HYDROCHLORIDE [Concomitant]
     Indication: DIURETIC THERAPY
  4. ALBUTEROL [Concomitant]
  5. TERAZOSIN HYDROCHLORIDE [Concomitant]
     Indication: BLOOD PRESSURE
  6. SPIRIVA [Concomitant]

REACTIONS (2)
  - CIRCUMSTANCE OR INFORMATION CAPABLE OF LEADING TO MEDICATION ERROR [None]
  - DYSPNOEA [None]
